FAERS Safety Report 4821228-2 (Version None)
Quarter: 2005Q4

REPORT INFORMATION
  Report Type: 
  Country: None (occurrence: None)
  Receive Date: 20051103
  Receipt Date: 20051021
  Transmission Date: 20060501
  Serious: Yes (Disabling, Other)
  Sender: FDA-Public Use
  Company Number: 2005084776

PATIENT
  Age: 44 Year
  Sex: 0

DRUGS (1)
  1. VIAGRA [Suspect]
     Indication: ILL-DEFINED DISORDER

REACTIONS (5)
  - CORRECTIVE LENS USER [None]
  - FEAR [None]
  - FEELING HOT [None]
  - VISUAL ACUITY REDUCED [None]
  - VITREOUS FLOATERS [None]
